FAERS Safety Report 15374957 (Version 1)
Quarter: 2018Q3

REPORT INFORMATION
  Report Type: Spontaneous
  Country: US (occurrence: US)
  Receive Date: 20180912
  Receipt Date: 20180912
  Transmission Date: 20181010
  Serious: Yes (Death, Other)
  Sender: FDA-Public Use
  Company Number: US-VALIDUS PHARMACEUTICALS LLC-US-2018VAL000903

PATIENT
  Age: 77 Year
  Sex: Male

DRUGS (1)
  1. METOPROLOL TARTRATE. [Suspect]
     Active Substance: METOPROLOL TARTRATE
     Indication: PRODUCT USED FOR UNKNOWN INDICATION
     Dosage: UNK

REACTIONS (6)
  - Toxicity to various agents [Fatal]
  - Depressed level of consciousness [Unknown]
  - Bradycardia [Unknown]
  - Atrioventricular block [Unknown]
  - Hypotension [Unknown]
  - Respiratory depression [Unknown]

NARRATIVE: CASE EVENT DATE: 2016
